FAERS Safety Report 15428520 (Version 1)
Quarter: 2018Q3

REPORT INFORMATION
  Report Type: Spontaneous
  Country: CH (occurrence: CH)
  Receive Date: 20180926
  Receipt Date: 20180926
  Transmission Date: 20181010
  Serious: Yes (Other)
  Sender: FDA-Public Use
  Company Number: CH-AMGEN-CHESP2018130604

PATIENT
  Age: 80 Year
  Sex: Female

DRUGS (2)
  1. PROLIA [Suspect]
     Active Substance: DENOSUMAB
     Dosage: UNK
     Route: 065
     Dates: start: 20180531
  2. PROLIA [Suspect]
     Active Substance: DENOSUMAB
     Indication: OSTEOPOROSIS
     Dosage: UNK
     Route: 065
     Dates: start: 201707

REACTIONS (2)
  - Rebound effect [Unknown]
  - Spinal fracture [Unknown]

NARRATIVE: CASE EVENT DATE: 2018
